FAERS Safety Report 6725673-X (Version None)
Quarter: 2010Q2

REPORT INFORMATION
  Report Type: 
  Country: None (occurrence: None)
  Receive Date: 20100514
  Receipt Date: 20100430
  Transmission Date: 20101027
  Serious: Yes (Other)
  Sender: FDA-Public Use
  Company Number: US-ROCHE-702717

PATIENT
  Age: 71 Year
  Sex: Female

DRUGS (1)
  1. HERCEPTIN [Suspect]
     Indication: BREAST CANCER
     Dosage: TAKEN FOR 3-4 WEEKS
     Route: 065
     Dates: start: 20070101, end: 20070101

REACTIONS (1)
  - NON-HODGKIN'S LYMPHOMA [None]
